FAERS Safety Report 5319736-3 (Version None)
Quarter: 2007Q2

REPORT INFORMATION
  Report Type: 
  Country: None (occurrence: None)
  Receive Date: 20070502
  Receipt Date: 20070419
  Transmission Date: 20071010
  Serious: Yes (Death, Hospitalization)
  Sender: FDA-Public Use
  Company Number: CERZ-11627

PATIENT
  Age: 4 Year
  Sex: Female

DRUGS (1)
  1. CEREZYME [Suspect]
     Indication: GAUCHER'S DISEASE
     Dosage: 1000 UNITS Q2WKS IV
     Route: 042
     Dates: start: 20030729

REACTIONS (1)
  - CARDIO-RESPIRATORY ARREST [None]
